FAERS Safety Report 5124222-X (Version None)
Quarter: 2006Q4

REPORT INFORMATION
  Report Type: 
  Country: None (occurrence: None)
  Receive Date: 20061010
  Receipt Date: 20060227
  Transmission Date: 20070319
  Serious: Yes (Hospitalization)
  Sender: FDA-Public Use
  Company Number: GB-BRISTOL-MYERS SQUIBB COMPANY-13296892

PATIENT
  Age: 27 Year
  Sex: Male

DRUGS (5)
  1. DASATINIB [Suspect]
     Indication: LEUKAEMIA
     Route: 048
     Dates: start: 20060105, end: 20060308
  2. MST [Concomitant]
     Dates: start: 20060125, end: 20060201
  3. DEXAMETHASONE TAB [Concomitant]
     Dates: start: 20060127
  4. VOLTAREN [Concomitant]
     Dates: start: 20060125
  5. ONDANSETRON [Concomitant]
     Dates: start: 20060214, end: 20060217

REACTIONS (3)
  - FEBRILE NEUTROPENIA [None]
  - NEUTROPENIA [None]
  - SEPSIS [None]
